FAERS Safety Report 4905182-0 (Version None)
Quarter: 2006Q1

REPORT INFORMATION
  Report Type: 
  Country: None (occurrence: None)
  Receive Date: 20060208
  Receipt Date: 20051122
  Transmission Date: 20060701
  Serious: Yes (Disabling)
  Sender: FDA-Public Use
  Company Number: US-GLAXOSMITHKLINE-A0583451A

PATIENT
  Age: 25 Year
  Sex: Male

DRUGS (6)
  1. PAROXETINE HCL [Suspect]
     Dosage: 20MG THREE TIMES PER DAY
     Route: 048
     Dates: start: 20050101, end: 20050101
  2. PAXIL CR [Suspect]
     Dosage: 37.5MG TWICE PER DAY
     Dates: start: 20050101
  3. LIPITOR [Concomitant]
  4. ADDERALL 10 [Concomitant]
  5. DEPAKOTE [Concomitant]
  6. FELBATOL [Concomitant]

REACTIONS (2)
  - ANXIETY [None]
  - DRUG INEFFECTIVE [None]
